FAERS Safety Report 21594921 (Version 1)
Quarter: 2022Q4

REPORT INFORMATION
  Report Type: Spontaneous
  Country: IN (occurrence: IN)
  Receive Date: 20221115
  Receipt Date: 20221115
  Transmission Date: 20230112
  Serious: Yes (Other)
  Sender: FDA-Public Use
  Company Number: IN-PFIZER INC-PV202200102195

PATIENT
  Age: 40 Year
  Sex: Male

DRUGS (2)
  1. INOTUZUMAB OZOGAMICIN [Suspect]
     Active Substance: INOTUZUMAB OZOGAMICIN
     Dosage: 2 VIALS
     Route: 042
     Dates: start: 20221006, end: 20221006
  2. INOTUZUMAB OZOGAMICIN [Suspect]
     Active Substance: INOTUZUMAB OZOGAMICIN
     Dosage: 1 VIAL
     Route: 042
     Dates: start: 20221013, end: 20221013

REACTIONS (2)
  - Thrombocytopenia [Unknown]
  - Haematological malignancy [Unknown]
